FAERS Safety Report 6736703-3 (Version None)
Quarter: 2010Q2

REPORT INFORMATION
  Report Type: 
  Country: None (occurrence: None)
  Receive Date: 20100521
  Receipt Date: 20100511
  Transmission Date: 20101027
  Serious: Yes (Other)
  Sender: FDA-Public Use
  Company Number: PHHY2010NI30580

PATIENT
  Age: 80 Year
  Sex: Female
  Weight: 60 kg

DRUGS (6)
  1. EXELON [Suspect]
     Dosage: 4.6MG/24 HOUR
     Route: 062
  2. RISPERDAL [Interacting]
     Dosage: UNK,
  3. LEVOTHYROXINE SODIUM [Concomitant]
     Dosage: UNK,
  4. ZIAC [Concomitant]
     Dosage: UNK,
  5. DIGOXIN [Concomitant]
     Dosage: UNK,
  6. RIVOTRIL [Concomitant]
     Dosage: UNK,

REACTIONS (6)
  - BLOOD IMMUNOGLOBULIN E INCREASED [None]
  - DRUG INTERACTION [None]
  - EOSINOPHILIA [None]
  - ERYTHEMA [None]
  - PEMPHIGOID [None]
  - SKIN LESION [None]
